FAERS Safety Report 7406450-3 (Version None)
Quarter: 2011Q2

REPORT INFORMATION
  Report Type: 
  Country: None (occurrence: None)
  Receive Date: 20110411
  Receipt Date: 20110406
  Transmission Date: 20111010
  Serious: Yes (Death, Other)
  Sender: FDA-Public Use
  Company Number: PHHY2011NL27499

PATIENT
  Sex: Male

DRUGS (3)
  1. ZOMETA [Suspect]
     Dosage: 4 MG/ 5 ML
     Dates: end: 20110331
  2. ZOMETA [Suspect]
     Indication: PROSTATE CANCER METASTATIC
     Dosage: 4 MG/ 5 ML
  3. ZOMETA [Suspect]
     Dosage: 4 MG/ 5 ML
     Dates: start: 20110301

REACTIONS (2)
  - DEATH [None]
  - TERMINAL STATE [None]
